FAERS Safety Report 14377078 (Version 1)
Quarter: 2018Q1

REPORT INFORMATION
  Report Type: Spontaneous
  Country: US (occurrence: US)
  Receive Date: 20180111
  Receipt Date: 20180111
  Transmission Date: 20180509
  Serious: No
  Sender: FDA-Public Use
  Company Number: US-DRREDDYS-USA/USA/16/0086052

PATIENT
  Age: 66 Year
  Sex: Female

DRUGS (5)
  1. HABITROL [Suspect]
     Active Substance: NICOTINE
     Route: 061
  2. HABITROL [Suspect]
     Active Substance: NICOTINE
     Route: 061
  3. ASPIRIN. [Concomitant]
     Active Substance: ASPIRIN
     Indication: PRODUCT USED FOR UNKNOWN INDICATION
     Route: 065
  4. HABITROL [Suspect]
     Active Substance: NICOTINE
     Indication: SMOKING CESSATION THERAPY
     Route: 061
  5. SIMVASTATIN. [Concomitant]
     Active Substance: SIMVASTATIN
     Indication: PRODUCT USED FOR UNKNOWN INDICATION
     Route: 065

REACTIONS (2)
  - Dermatitis contact [Recovered/Resolved]
  - Treatment noncompliance [Unknown]
